FAERS Safety Report 4630604-2 (Version None)
Quarter: 2005Q2

REPORT INFORMATION
  Report Type: 
  Country: None (occurrence: None)
  Receive Date: 20050405
  Receipt Date: 20050405
  Transmission Date: 20051028
  Serious: Yes (Hospitalization)
  Sender: FDA-Public Use
  Company Number: None

PATIENT
  Age: 2 Year
  Sex: Female
  Weight: 12 kg

DRUGS (9)
  1. CYCLOSPORINE [Suspect]
     Indication: ACUTE MYELOID LEUKAEMIA
     Dosage: 27MG IV Q12H
     Route: 042
  2. CYCLOSPORINE [Suspect]
     Indication: BONE MARROW TRANSPLANT
     Dosage: 27MG IV Q12H
     Route: 042
  3. MYCOPHENOLATE [Concomitant]
  4. FLUCONAZOLE [Concomitant]
  5. BACTRIM SUSP. [Concomitant]
  6. PREDNISOLONE [Concomitant]
  7. AMOXICILLIN [Concomitant]
  8. CHLORHEXIDINE SOLN. [Concomitant]
  9. NYSTATIN [Concomitant]

REACTIONS (2)
  - MEDICATION ERROR [None]
  - URTICARIA [None]
